FAERS Safety Report 9698589 (Version 2)
Quarter: 2013Q4

REPORT INFORMATION
  Report Type: Report from Study
  Country: NL (occurrence: NL)
  Receive Date: 20131120
  Receipt Date: 20131230
  Transmission Date: 20140711
  Serious: Yes (Hospitalization)
  Sender: FDA-Public Use
  Company Number: NL-GLAXOSMITHKLINE-B0944885A

PATIENT
  Age: 55 Year
  Sex: Male

DRUGS (5)
  1. PAZOPANIB [Suspect]
     Indication: RENAL CELL CARCINOMA
     Dosage: 800MG PER DAY
     Route: 048
     Dates: start: 20130313
  2. EVEROLIMUS [Suspect]
     Indication: RENAL CELL CARCINOMA
     Route: 048
     Dates: start: 20130509, end: 20130829
  3. ALLOPURINOL [Concomitant]
     Dosage: 300MG PER DAY
  4. DICLOFENAC [Concomitant]
     Dosage: 150MG PER DAY
     Dates: start: 20131104
  5. OMEPRAZOL [Concomitant]
     Dosage: 20MG PER DAY

REACTIONS (1)
  - Transient ischaemic attack [Recovered/Resolved]
